FAERS Safety Report 6831922-X (Version None)
Quarter: 2010Q3

REPORT INFORMATION
  Report Type: 
  Country: None (occurrence: None)
  Receive Date: 20100712
  Receipt Date: 20100701
  Transmission Date: 20110219
  Serious: Yes (Hospitalization)
  Sender: FDA-Public Use
  Company Number: JP-MERCK-1007USA00301

PATIENT
  Age: 56 Year
  Sex: Female

DRUGS (2)
  1. ZETIA [Suspect]
     Route: 048
  2. AMLODIPINE BESYLATE [Concomitant]
     Route: 065

REACTIONS (2)
  - HEPATITIS [None]
  - PNEUMONIA [None]
